FAERS Safety Report 7197379-7 (Version None)
Quarter: 2010Q4

REPORT INFORMATION
  Report Type: 
  Country: None (occurrence: None)
  Receive Date: 20101213
  Receipt Date: 20101202
  Transmission Date: 20110411
  Serious: Yes (Death)
  Sender: FDA-Public Use
  Company Number: DKLU1065926

PATIENT
  Age: 3 Year
  Sex: Male

DRUGS (1)
  1. SABRIL [Suspect]
     Indication: PARTIAL SEIZURES
     Dosage: 250 MG MILLIGRAM(S),  2 IN 1 D, ORAL
     Route: 048

REACTIONS (1)
  - DEATH [None]
